FAERS Safety Report 5918119-2 (Version None)
Quarter: 2008Q4

REPORT INFORMATION
  Report Type: 
  Country: None (occurrence: None)
  Receive Date: 20081014
  Receipt Date: 20081007
  Transmission Date: 20090506
  Serious: Yes (Hospitalization)
  Sender: FDA-Public Use
  Company Number: IT-ASTRAZENECA-2008SE04588

PATIENT
  Age: 20981 Day
  Sex: Female

DRUGS (2)
  1. XYLOCAINE [Suspect]
     Route: 004
     Dates: start: 20080826, end: 20080826
  2. EPINEPHRINE [Suspect]
     Route: 004
     Dates: start: 20080826, end: 20080826

REACTIONS (1)
  - LIP HAEMATOMA [None]
